FAERS Safety Report 14070060 (Version 2)
Quarter: 2017Q4

REPORT INFORMATION
  Report Type: Spontaneous
  Country: US (occurrence: US)
  Receive Date: 20171010
  Receipt Date: 20171109
  Transmission Date: 20180321
  Serious: Yes (Hospitalization)
  Sender: FDA-Public Use
  Company Number: US-BRACCO-2017US04505

PATIENT
  Age: 62 Year
  Sex: Male

DRUGS (11)
  1. FENTANYL. [Concomitant]
     Active Substance: FENTANYL
  2. ZOMIG [Concomitant]
     Active Substance: ZOLMITRIPTAN
  3. ISOVUE 300 [Suspect]
     Active Substance: IOPAMIDOL
     Indication: ANGIOGRAM CEREBRAL
     Dosage: UNK UNK, SINGLE
     Route: 013
     Dates: start: 20170914, end: 20170914
  4. LIPITOR [Concomitant]
     Active Substance: ATORVASTATIN CALCIUM
  5. NEURONTIN [Concomitant]
     Active Substance: GABAPENTIN
  6. VERSED [Concomitant]
     Active Substance: MIDAZOLAM HYDROCHLORIDE
  7. KLONOPIN [Concomitant]
     Active Substance: CLONAZEPAM
     Dosage: UNK, AS NECESSARY
  8. ENALAPRIL [Concomitant]
     Active Substance: ENALAPRIL
  9. INSULIN [Concomitant]
     Active Substance: INSULIN NOS
  10. PROPRANOLOL [Concomitant]
     Active Substance: PROPRANOLOL HYDROCHLORIDE
  11. CELEXA [Concomitant]
     Active Substance: CITALOPRAM HYDROBROMIDE

REACTIONS (4)
  - Embolic cerebral infarction [Recovering/Resolving]
  - Hemiparesis [Recovering/Resolving]
  - Memory impairment [Recovering/Resolving]
  - Visual impairment [Recovering/Resolving]

NARRATIVE: CASE EVENT DATE: 20170915
